FAERS Safety Report 8388272 (Version 2)
Quarter: 2014Q1

REPORT INFORMATION
  Report Type: Spontaneous
  Country: US (occurrence: US)
  Receive Date: 20120203
  Receipt Date: 20140228
  Transmission Date: 20141002
  Serious: No
  Sender: FDA-Public Use
  Company Number: US-GLAXOSMITHKLINE-A0933890A

PATIENT
  Sex: 0

DRUGS (3)
  1. LAMICTAL [Suspect]
     Indication: BIPOLAR DISORDER
     Dosage: 150MG FOUR TIMES PER DAY
     Route: 048
     Dates: start: 2002
  2. PAXIL CR [Concomitant]
     Route: 048
  3. MOTRIN [Concomitant]
     Indication: PAIN

REACTIONS (6)
  - Retching [Unknown]
  - Dysgeusia [Unknown]
  - Prescribed overdose [Unknown]
  - Dysphagia [Unknown]
  - Drug ineffective [Unknown]
  - Visual acuity reduced [Not Recovered/Not Resolved]
